FAERS Safety Report 8289024-4 (Version None)
Quarter: 2012Q2

REPORT INFORMATION
  Report Type: 
  Country: None (occurrence: None)
  Receive Date: 20120412
  Receipt Date: 20120328
  Transmission Date: 20120825
  Serious: Yes (Other)
  Sender: FDA-Public Use
  Company Number: FK201200962

PATIENT
  Age: 58 Year
  Sex: Female

DRUGS (2)
  1. CYTARABINE [Suspect]
     Indication: ACUTE MYELOID LEUKAEMIA
     Dosage: 2.6 MG/KG, 7 DAYS
  2. DAUNORUBICIN HCL [Suspect]
     Indication: ACUTE MYELOID LEUKAEMIA
     Dosage: 1.5 MG/KG, 3 DAYS

REACTIONS (10)
  - PAPULE [None]
  - ANAEMIA [None]
  - THROMBOCYTOPENIA [None]
  - FEBRILE NEUTROPENIA [None]
  - FATIGUE [None]
  - HIDRADENITIS [None]
  - STAPHYLOCOCCAL INFECTION [None]
  - CELLULITIS [None]
  - CONTUSION [None]
  - PALLOR [None]
